FAERS Safety Report 17357419 (Version 1)
Quarter: 2020Q1

REPORT INFORMATION
  Report Type: Report from Study
  Country: None (occurrence: US)
  Receive Date: 20200131
  Receipt Date: 20200131
  Transmission Date: 20200409
  Serious: Yes (Hospitalization, Other)
  Sender: FDA-Public Use
  Company Number: US-BIOVITRUM-2019US3901

PATIENT
  Sex: Female

DRUGS (2)
  1. KINERET [Suspect]
     Active Substance: ANAKINRA
     Route: 058
  2. KINERET [Suspect]
     Active Substance: ANAKINRA
     Indication: POLYARTHRITIS
     Route: 058
     Dates: start: 20190424

REACTIONS (27)
  - Fatigue [Unknown]
  - Pain in extremity [Unknown]
  - Pain [Unknown]
  - Off label use [Not Recovered/Not Resolved]
  - Eye haemorrhage [Unknown]
  - Pyrexia [Unknown]
  - Breath sounds abnormal [Unknown]
  - Peripheral swelling [Unknown]
  - Erythema [Unknown]
  - Pruritus [Unknown]
  - Tendon rupture [Unknown]
  - Chest pain [Unknown]
  - Vitamin D deficiency [Unknown]
  - Foot deformity [Unknown]
  - Stress urinary incontinence [Unknown]
  - Bursitis [Recovering/Resolving]
  - Back pain [Unknown]
  - Blood urine present [Unknown]
  - Trigger finger [Unknown]
  - Systemic lupus erythematosus [Unknown]
  - Hot flush [Unknown]
  - Osteopenia [Unknown]
  - Leukopenia [Unknown]
  - Vision blurred [Unknown]
  - Migraine [Unknown]
  - Tenderness [Unknown]
  - Headache [Unknown]
